FAERS Safety Report 6478187-9 (Version None)
Quarter: 2009Q4

REPORT INFORMATION
  Report Type: 
  Country: None (occurrence: None)
  Receive Date: 20091207
  Receipt Date: 20091204
  Transmission Date: 20100525
  Serious: Yes (Life-Threatening, Hospitalization)
  Sender: FDA-Public Use
  Company Number: IN-WYE-H12286609

PATIENT
  Sex: Male
  Weight: 73 kg

DRUGS (9)
  1. TEMSIROLIMUS [Suspect]
     Indication: METASTATIC RENAL CELL CARCINOMA
     Route: 042
     Dates: start: 20090807
  2. ACETAMINOPHEN [Concomitant]
     Indication: PYREXIA
     Route: 048
     Dates: start: 20091111, end: 20091121
  3. PANTOPRAZOLE [Concomitant]
     Indication: GASTRITIS PROPHYLAXIS
     Route: 048
     Dates: start: 20090824, end: 20091121
  4. AMLODIPINE [Concomitant]
     Indication: HYPERTENSION
     Route: 048
     Dates: start: 20091022, end: 20091121
  5. GLIPIZIDE [Concomitant]
     Indication: DIABETES MELLITUS
     Route: 048
     Dates: start: 20091119, end: 20091121
  6. VOGLIBOSE [Concomitant]
     Indication: DIABETES MELLITUS
     Route: 048
     Dates: start: 20091119, end: 20091121
  7. MULTI-VITAMINS [Concomitant]
     Indication: NUTRITIONAL SUPPORT
     Dosage: 25 ^MGP^ OD
     Route: 048
     Dates: start: 20090910, end: 20091121
  8. BEVACIZUMAB [Suspect]
     Indication: METASTATIC RENAL CELL CARCINOMA
     Route: 042
     Dates: start: 20090807
  9. BETADINE [Concomitant]
     Indication: DENTAL DISORDER PROPHYLAXIS
     Dosage: GARGLES 6 TIMES
     Route: 048
     Dates: start: 20091112, end: 20091121

REACTIONS (2)
  - COLITIS [None]
  - DYSPNOEA [None]
